FAERS Safety Report 9467016 (Version 1)
Quarter: 2013Q3

REPORT INFORMATION
  Report Type: Spontaneous
  Country: US (occurrence: US)
  Receive Date: 20130820
  Receipt Date: 20130820
  Transmission Date: 20140515
  Serious: Yes (Hospitalization)
  Sender: FDA-Public Use
  Company Number: US-GLAXOSMITHKLINE-A1037498A

PATIENT
  Sex: Female

DRUGS (7)
  1. ADVAIR [Suspect]
     Indication: CHRONIC OBSTRUCTIVE PULMONARY DISEASE
     Dosage: 1PUFF TWICE PER DAY
     Route: 055
     Dates: start: 201106
  2. SPIRIVA [Concomitant]
  3. VENTOLIN [Concomitant]
  4. PAXIL [Concomitant]
  5. DILTIAZEM [Concomitant]
  6. METOPROLOL [Concomitant]
  7. HCTZ/TRIAMTERENE [Concomitant]

REACTIONS (2)
  - Chronic obstructive pulmonary disease [Recovered/Resolved]
  - Treatment noncompliance [Not Recovered/Not Resolved]
